FAERS Safety Report 13425417 (Version 8)
Quarter: 2018Q3

REPORT INFORMATION
  Report Type: Spontaneous
  Country: CA (occurrence: CA)
  Receive Date: 20170411
  Receipt Date: 20180928
  Transmission Date: 20181010
  Serious: Yes (Other)
  Sender: FDA-Public Use
  Company Number: CA-ROCHE-1918429

PATIENT
  Age: 59 Year
  Sex: Male

DRUGS (13)
  1. AERIUS [Concomitant]
     Active Substance: DESLORATADINE
     Indication: ASTHMA
     Dosage: 1 DF, QD
     Route: 055
     Dates: start: 201603
  2. BENADRYL [Concomitant]
     Active Substance: DIPHENHYDRAMINE HYDROCHLORIDE
     Indication: ASTHMA
     Dosage: 1 DF, QD
     Route: 048
     Dates: start: 201612
  3. VENTOLIN [Concomitant]
     Active Substance: ALBUTEROL SULFATE
     Route: 065
     Dates: end: 201602
  4. XOLAIR [Suspect]
     Active Substance: OMALIZUMAB
     Indication: ASTHMA
     Route: 058
     Dates: start: 20170403
  5. XOLAIR [Suspect]
     Active Substance: OMALIZUMAB
     Dosage: 225 MG, BIW
     Route: 058
     Dates: start: 20180810
  6. XOLAIR [Suspect]
     Active Substance: OMALIZUMAB
     Indication: ASTHMA
     Dosage: UNK
     Route: 058
     Dates: start: 20170922
  7. XOLAIR [Suspect]
     Active Substance: OMALIZUMAB
     Dosage: UNK
     Route: 058
     Dates: start: 20171130
  8. XOLAIR [Suspect]
     Active Substance: OMALIZUMAB
     Route: 058
     Dates: start: 20180907
  9. XOLAIR [Suspect]
     Active Substance: OMALIZUMAB
     Dosage: 225 MG, BIW
     Route: 058
     Dates: start: 20180209
  10. PULMICORT TURBUHALER [Concomitant]
     Active Substance: BUDESONIDE
     Indication: ASTHMA
     Dosage: UNK
     Route: 055
     Dates: end: 201602
  11. XOLAIR [Suspect]
     Active Substance: OMALIZUMAB
     Dosage: UNK
     Route: 058
     Dates: start: 20171020
  12. SYMBICORT [Concomitant]
     Active Substance: BUDESONIDE\FORMOTEROL FUMARATE DIHYDRATE
     Indication: ASTHMA
     Dosage: 4 DF, QD
     Route: 055
     Dates: start: 201307
  13. VENTOLIN [Concomitant]
     Active Substance: ALBUTEROL SULFATE
     Indication: ASTHMA
     Dosage: 1 DF, UNK
     Route: 055
     Dates: end: 201602

REACTIONS (25)
  - Muscle spasms [Unknown]
  - Rhinorrhoea [Not Recovered/Not Resolved]
  - Wheezing [Not Recovered/Not Resolved]
  - Peripheral swelling [Not Recovered/Not Resolved]
  - Sinus congestion [Not Recovered/Not Resolved]
  - Nasal congestion [Not Recovered/Not Resolved]
  - Joint swelling [Not Recovered/Not Resolved]
  - Pain [Recovering/Resolving]
  - Diarrhoea [Recovered/Resolved]
  - Lower respiratory tract congestion [Not Recovered/Not Resolved]
  - Weight decreased [Unknown]
  - Haematochezia [Recovered/Resolved]
  - Back pain [Unknown]
  - Fall [Unknown]
  - Oropharyngeal pain [Recovering/Resolving]
  - Chills [Recovering/Resolving]
  - Accident at work [Unknown]
  - Productive cough [Recovered/Resolved]
  - Upper respiratory tract congestion [Recovered/Resolved]
  - Cough [Not Recovered/Not Resolved]
  - Abdominal pain upper [Recovered/Resolved]
  - Eye pruritus [Unknown]
  - Hypersensitivity [Unknown]
  - Eye swelling [Unknown]
  - Sputum discoloured [Recovered/Resolved]

NARRATIVE: CASE EVENT DATE: 20170403
